FAERS Safety Report 7307687-4 (Version None)
Quarter: 2011Q1

REPORT INFORMATION
  Report Type: 
  Country: None (occurrence: None)
  Receive Date: 20110223
  Receipt Date: 20110217
  Transmission Date: 20110831
  Serious: Yes (Death)
  Sender: FDA-Public Use
  Company Number: BE-ABBOTT-11P-013-0705854-00

PATIENT
  Weight: 74 kg

DRUGS (2)
  1. ESTRACYT [Concomitant]
     Indication: PRODUCT USED FOR UNKNOWN INDICATION
     Dates: start: 20090930
  2. LUCRIN DEPOT 11.25 MG [Suspect]
     Indication: PROSTATE CANCER
     Dates: start: 20081003, end: 20090930

REACTIONS (3)
  - DISEASE PROGRESSION [None]
  - NEOPLASM MALIGNANT [None]
  - PROSTATE CANCER [None]
